FAERS Safety Report 7207314-0 (Version None)
Quarter: 2011Q1

REPORT INFORMATION
  Report Type: 
  Country: None (occurrence: None)
  Receive Date: 20110103
  Receipt Date: 20101227
  Transmission Date: 20110831
  Serious: Yes (Hospitalization)
  Sender: FDA-Public Use
  Company Number: PT-ROXANE LABORATORIES, INC.-2010-RO-01721RO

PATIENT
  Age: 61 Year
  Sex: Male

DRUGS (2)
  1. LITHIUM CARBONATE [Suspect]
     Indication: BIPOLAR DISORDER
     Dosage: 800 MG
  2. FLUVOXAMINE MALEATE [Suspect]
     Indication: BIPOLAR DISORDER
     Dosage: 200 MG

REACTIONS (1)
  - NEUROTOXICITY [None]
